FAERS Safety Report 4975756-X (Version None)
Quarter: 2006Q2

REPORT INFORMATION
  Report Type: 
  Country: None (occurrence: None)
  Receive Date: 20060411
  Receipt Date: 20060324
  Transmission Date: 20061013
  Serious: Yes (Hospitalization)
  Sender: FDA-Public Use
  Company Number: US200603006393

PATIENT
  Age: 82 Year
  Sex: Female

DRUGS (3)
  1. FORTEO [Suspect]
     Indication: OSTEOPOROSIS
     Dates: start: 20040901
  2. FORTEO [Concomitant]
  3. LUMIGAN [Concomitant]

REACTIONS (13)
  - ARTHRALGIA [None]
  - CONTUSION [None]
  - DIZZINESS [None]
  - EXCORIATION [None]
  - FALL [None]
  - GASTROENTERITIS VIRAL [None]
  - HAEMOGLOBIN DECREASED [None]
  - HEAD INJURY [None]
  - LACERATION [None]
  - LOSS OF CONSCIOUSNESS [None]
  - PHARMACEUTICAL PRODUCT COMPLAINT [None]
  - RED BLOOD CELL COUNT DECREASED [None]
  - VOMITING [None]
